FAERS Safety Report 8419004-7 (Version None)
Quarter: 2012Q2

REPORT INFORMATION
  Report Type: 
  Country: None (occurrence: None)
  Receive Date: 20120607
  Receipt Date: 20120531
  Transmission Date: 20120825
  Serious: Yes (Other)
  Sender: FDA-Public Use
  Company Number: PHHY2012JP048311

PATIENT
  Sex: Female

DRUGS (2)
  1. RIVASTIGMINE [Suspect]
     Indication: DEMENTIA ALZHEIMER'S TYPE
     Dosage: 9 MG, DAILY
     Route: 062
  2. RIVASTIGMINE [Suspect]
     Dosage: 13.5 MG,DAILY
     Route: 062

REACTIONS (4)
  - AGGRESSION [None]
  - HEAD INJURY [None]
  - FALL [None]
  - HAEMORRHAGE [None]
